FAERS Safety Report 7410475-1 (Version None)
Quarter: 2011Q2

REPORT INFORMATION
  Report Type: 
  Country: None (occurrence: None)
  Receive Date: 20110413
  Receipt Date: 20110405
  Transmission Date: 20111010
  Serious: Yes (Hospitalization)
  Sender: FDA-Public Use
  Company Number: US-BIOGENIDEC-2011BI010379

PATIENT
  Age: 58 Year
  Sex: Female

DRUGS (1)
  1. AVONEX [Suspect]
     Indication: MULTIPLE SCLEROSIS
     Route: 030
     Dates: start: 20070516

REACTIONS (6)
  - OESOPHAGEAL ACHALASIA [None]
  - RESPIRATORY DISTRESS [None]
  - PULMONARY FIBROSIS [None]
  - PNEUMONIA [None]
  - URTICARIA [None]
  - ANAEMIA [None]
